FAERS Safety Report 8188815-8 (Version None)
Quarter: 2012Q1

REPORT INFORMATION
  Report Type: 
  Country: None (occurrence: None)
  Receive Date: 20120306
  Receipt Date: 20120227
  Transmission Date: 20120608
  Serious: Yes (Other)
  Sender: FDA-Public Use
  Company Number: US-BAYER-2012-019481

PATIENT
  Age: 70 Year
  Sex: Female
  Weight: 54 kg

DRUGS (1)
  1. ASPIRIN [Suspect]
     Dosage: 1 DF, ONCE
     Route: 060
     Dates: start: 20120225, end: 20120225

REACTIONS (2)
  - BURNING SENSATION [None]
  - TONGUE BLISTERING [None]
